FAERS Safety Report 7148481-7 (Version None)
Quarter: 2010Q4

REPORT INFORMATION
  Report Type: 
  Country: None (occurrence: None)
  Receive Date: 20101209
  Receipt Date: 20101112
  Transmission Date: 20110411
  Serious: Yes (Death)
  Sender: FDA-Public Use
  Company Number: US-PFIZER INC-US-WYE-H13404710

PATIENT
  Age: 32 Year
  Sex: Female

DRUGS (7)
  1. ROBITUSSIN [Suspect]
     Indication: INFLUENZA LIKE ILLNESS
     Route: 048
  2. VICODIN [Suspect]
     Indication: PRODUCT USED FOR UNKNOWN INDICATION
     Route: 048
  3. PROPRANOLOL [Suspect]
  4. PHENAZOPYRIDINE [Suspect]
  5. FLUOXETINE [Suspect]
  6. CHLORPHENAMINE [Suspect]
  7. DEXTROMETHORPHAN [Suspect]

REACTIONS (3)
  - DRUG TOXICITY [None]
  - IRON DEFICIENCY ANAEMIA [None]
  - PNEUMONIA [None]
